FAERS Safety Report 8389206 (Version 2)
Quarter: 2012Q4

REPORT INFORMATION
  Report Type: Report from Study
  Country: US (occurrence: US)
  Receive Date: 20120203
  Receipt Date: 20121023
  Transmission Date: 20130627
  Serious: Yes (Other)
  Sender: FDA-Public Use
  Company Number: US-UCBSA-017865

PATIENT
  Age: 53 Year
  Sex: Female
  Weight: 85.91 kg

DRUGS (12)
  1. CIMZIA [Suspect]
     Indication: CROHN^S DISEASE
     Route: 058
     Dates: start: 20100212, end: 201007
  2. ENTOCORT [Concomitant]
     Indication: CROHN^S DISEASE
     Dates: start: 20080316
  3. PREDNISONE [Concomitant]
     Indication: CROHN^S DISEASE
     Dates: start: 20100414, end: 20100421
  4. AZATHIOPRINE [Concomitant]
     Indication: CROHN^S DISEASE
     Dosage: DISCONTINUED TREATMENT DUE TO INTOLERANCE
     Dates: start: 20080315, end: 20080321
  5. INFLIXIMAB [Concomitant]
     Indication: CROHN^S DISEASE
     Dosage: DISCONTINUED DUE TO INTOLERANCE
     Dates: start: 20080415, end: 20091104
  6. MULTIVITAMIN [Concomitant]
  7. VITAMIN D [Concomitant]
  8. ZYRTEC [Concomitant]
  9. ROWASA ENEMA [Concomitant]
     Indication: CROHN^S DISEASE
     Dates: start: 20010920, end: 20010920
  10. MESALAMINE [Concomitant]
     Indication: CROHN^S DISEASE
     Dosage: DISCONTINUED DUE TO INTORERANCE
     Dates: start: 200110, end: 200710
  11. CIPRO [Concomitant]
     Indication: CROHN^S DISEASE
     Dosage: DONE WITH PRESCRIBED COURSE
     Dates: start: 20070620, end: 20070620
  12. ACETAMINOPHEN [Concomitant]
     Indication: CROHN^S DISEASE

REACTIONS (1)
  - Breast cancer metastatic [Not Recovered/Not Resolved]
